FAERS Safety Report 7903762-1 (Version None)
Quarter: 2011Q4

REPORT INFORMATION
  Report Type: 
  Country: None (occurrence: None)
  Receive Date: 20111109
  Receipt Date: 20111028
  Transmission Date: 20120403
  Serious: Yes (Other)
  Sender: FDA-Public Use
  Company Number: US-BAXTER-2011BH034526

PATIENT

DRUGS (1)
  1. FEIBA [Suspect]
     Indication: HAEMORRHAGE
     Route: 065
     Dates: start: 20110101

REACTIONS (1)
  - DRUG EFFECT DECREASED [None]
